FAERS Safety Report 26073921 (Version 1)
Quarter: 2025Q4

REPORT INFORMATION
  Report Type: Spontaneous
  Country: CN (occurrence: CN)
  Receive Date: 20251121
  Receipt Date: 20251121
  Transmission Date: 20260117
  Serious: Yes (Hospitalization)
  Sender: DR REDDYS
  Company Number: None

PATIENT
  Age: 67 Year
  Sex: Male
  Weight: 55 kg

DRUGS (6)
  1. PEMETREXED [Suspect]
     Active Substance: PEMETREXED
     Indication: Lung adenocarcinoma
     Dosage: 0.8 G PEMETREXED ON DAY 1, ONCE EVERY 3 WEEKS; RECEIVED 6 CYCLES
     Route: 042
     Dates: start: 202404
  2. CARBOPLATIN [Suspect]
     Active Substance: CARBOPLATIN
     Indication: Lung adenocarcinoma
     Dosage: 0.4 G CARBOPLATIN ON DAY 1, ONCE EVERY 3 WEEKS; RECEIVED 6 CYCLES
     Route: 042
     Dates: start: 202404
  3. CARBOPLATIN [Suspect]
     Active Substance: CARBOPLATIN
     Indication: Lung neoplasm malignant
  4. CARBOPLATIN [Suspect]
     Active Substance: CARBOPLATIN
     Indication: Lung adenocarcinoma
  5. BEVACIZUMAB [Suspect]
     Active Substance: BEVACIZUMAB
     Indication: Lung adenocarcinoma stage IV
     Dosage: 700 MG BEVACIZUMAB ON DAY 1, EVERY 3 WEEKS FOR A TOTAL OF 4 CYCLES
     Dates: start: 202404, end: 202408
  6. BEVACIZUMAB [Suspect]
     Active Substance: BEVACIZUMAB
     Dosage: DOSE OF BEVACIZUMAB DOSE WAS ADJUSTED TO 800 MG ON DAY 1, EVERY 3 WEEKS FROM 5TH CYCLE ONWARDS (RECE
     Dates: start: 202408

REACTIONS (2)
  - Oesophageal perforation [Unknown]
  - Tracheo-oesophageal fistula [Unknown]

NARRATIVE: CASE EVENT DATE: 20241101
